FAERS Safety Report 7377453-2 (Version None)
Quarter: 2011Q1

REPORT INFORMATION
  Report Type: 
  Country: None (occurrence: None)
  Receive Date: 20110316
  Receipt Date: 20110228
  Transmission Date: 20110831
  Serious: Yes (Death)
  Sender: FDA-Public Use
  Company Number: 1000019160

PATIENT
  Age: 76 Year
  Sex: Female
  Weight: 90.4 kg

DRUGS (10)
  1. ESCITALOPRAM [Suspect]
     Indication: DEPRESSION
     Dosage: 5 MG (5 MG, 1 IN 1 D), ORAL; 10 MG, (10 MG, 1 IN 1 D), ORAL; 20 MG (20 MG, 1 IN 1 D), ORAL
     Route: 048
     Dates: start: 20100720, end: 20100730
  2. ESCITALOPRAM [Suspect]
     Indication: DEPRESSION
     Dosage: 5 MG (5 MG, 1 IN 1 D), ORAL; 10 MG, (10 MG, 1 IN 1 D), ORAL; 20 MG (20 MG, 1 IN 1 D), ORAL
     Route: 048
     Dates: start: 20100804, end: 20100810
  3. ESCITALOPRAM [Suspect]
     Indication: DEPRESSION
     Dosage: 5 MG (5 MG, 1 IN 1 D), ORAL; 10 MG, (10 MG, 1 IN 1 D), ORAL; 20 MG (20 MG, 1 IN 1 D), ORAL
     Route: 048
     Dates: start: 20100731, end: 20100803
  4. BISOPROLOL (BISOPROLOL) [Suspect]
     Dosage: 5 MG (5 MG, 1 IN 1 D), ORAL
     Route: 048
  5. FERRO SANOL (FERROUS SULFATE) [Concomitant]
  6. METOCLOPRAMIDE [Concomitant]
  7. KEPPRA [Suspect]
     Dosage: 1000 MG (1000 MG, 1 IN 1 D), ORAL
     Route: 048
     Dates: start: 20100805, end: 20100810
  8. TORASEM (TORASEMIDE) [Suspect]
     Dosage: 10 MG (10 MG, 1 IN 1 D), ORAL
     Route: 048
  9. PANTOPRAZOLE SODIUM [Concomitant]
  10. ASPIRIN [Concomitant]

REACTIONS (9)
  - LACERATION [None]
  - URINARY TRACT INFECTION [None]
  - FALL [None]
  - DIZZINESS [None]
  - CEREBRAL HAEMORRHAGE [None]
  - HYPOTENSION [None]
  - NAUSEA [None]
  - DEPRESSED LEVEL OF CONSCIOUSNESS [None]
  - DRUG INTERACTION [None]
